FAERS Safety Report 24439930 (Version 1)
Quarter: 2024Q4

REPORT INFORMATION
  Report Type: Report from Study
  Country: US (occurrence: US)
  Receive Date: 20241015
  Receipt Date: 20241015
  Transmission Date: 20250114
  Serious: Yes (Life-Threatening, Hospitalization, Other)
  Sender: ABBVIE
  Company Number: US-ABBVIE-5960633

PATIENT
  Sex: Female

DRUGS (1)
  1. RINVOQ [Suspect]
     Active Substance: UPADACITINIB
     Indication: Colitis ulcerative
     Dosage: 45 MILLIGRAM
     Route: 048
     Dates: start: 20240918

REACTIONS (9)
  - Large intestine perforation [Recovering/Resolving]
  - Mobility decreased [Recovered/Resolved]
  - Malaise [Recovering/Resolving]
  - Movement disorder [Recovering/Resolving]
  - Abdominal pain [Recovering/Resolving]
  - Gait inability [Recovered/Resolved]
  - Feeling abnormal [Recovered/Resolved]
  - Abdominal discomfort [Recovering/Resolving]
  - Disorientation [Unknown]

NARRATIVE: CASE EVENT DATE: 20240101
